FAERS Safety Report 6196370-7 (Version None)
Quarter: 2009Q2

REPORT INFORMATION
  Report Type: 
  Country: None (occurrence: None)
  Receive Date: 20090518
  Receipt Date: 20090507
  Transmission Date: 20091009
  Serious: Yes (Death, Hospitalization)
  Sender: FDA-Public Use
  Company Number: POMP-1000604

PATIENT
  Age: 3 Year
  Sex: Female

DRUGS (3)
  1. MYOZYME [Suspect]
     Indication: GLYCOGEN STORAGE DISEASE TYPE II
     Dosage: 20 MG/KG, QOW,
     Dates: start: 20060308
  2. ANTIBIOTICS UNKNOWN [Suspect]
  3. MESNA [Concomitant]

REACTIONS (7)
  - IRRITABILITY [None]
  - ORTHOPNOEA [None]
  - OXYGEN SATURATION DECREASED [None]
  - PNEUMONIA [None]
  - PULSE ABSENT [None]
  - SPUTUM PURULENT [None]
  - UNRESPONSIVE TO STIMULI [None]
